FAERS Safety Report 20262473 (Version 1)
Quarter: 2021Q4

REPORT INFORMATION
  Report Type: Report from Study
  Country: US (occurrence: US)
  Receive Date: 20211231
  Receipt Date: 20211231
  Transmission Date: 20220303
  Serious: Yes (Other)
  Sender: FDA-Public Use
  Company Number: US-ABBVIE-21K-163-4173058-00

PATIENT
  Age: 45 Year
  Sex: Female
  Weight: 102.15 kg

DRUGS (20)
  1. HUMIRA [Suspect]
     Active Substance: ADALIMUMAB
     Indication: Rheumatoid arthritis
     Dosage: CITRATE FREE
     Route: 058
     Dates: start: 20201201
  2. HUMIRA [Suspect]
     Active Substance: ADALIMUMAB
     Dosage: CF
     Route: 058
     Dates: start: 202109
  3. MODERNA [Concomitant]
     Indication: COVID-19 immunisation
     Route: 030
     Dates: start: 20210203, end: 20210203
  4. MODERNA [Concomitant]
     Route: 030
     Dates: start: 20210312, end: 20210312
  5. MODERNA [Concomitant]
     Route: 030
     Dates: start: 20211110, end: 20211110
  6. METHOTREXATE [Concomitant]
     Active Substance: METHOTREXATE
     Indication: Rheumatoid arthritis
  7. METHOCARBAMOL [Concomitant]
     Active Substance: METHOCARBAMOL
     Indication: Back pain
  8. DULOXETINE [Concomitant]
     Active Substance: DULOXETINE
     Indication: Anxiety
  9. HYDROXYZINE [Concomitant]
     Active Substance: HYDROXYZINE HYDROCHLORIDE
     Indication: Anxiety
  10. CELEBREX [Concomitant]
     Active Substance: CELECOXIB
     Indication: Rheumatoid arthritis
  11. BUPROPION [Concomitant]
     Active Substance: BUPROPION
     Indication: Depression
  12. PANTOPRAZOLE [Concomitant]
     Active Substance: PANTOPRAZOLE
     Indication: Gastrooesophageal reflux disease
  13. OXYCODONE [Concomitant]
     Active Substance: OXYCODONE
     Indication: Pain
  14. PREGABALIN [Concomitant]
     Active Substance: PREGABALIN
     Indication: Neuralgia
  15. PRAMIPEXOLE [Concomitant]
     Active Substance: PRAMIPEXOLE
     Indication: Restless legs syndrome
  16. BUSPIRONE [Concomitant]
     Active Substance: BUSPIRONE HYDROCHLORIDE
     Indication: Anxiety
  17. BUSPIRONE [Concomitant]
     Active Substance: BUSPIRONE HYDROCHLORIDE
     Indication: Depression
  18. LEXAPRO [Concomitant]
     Active Substance: ESCITALOPRAM OXALATE
     Indication: Anxiety
  19. HYDROMORPHONE [Concomitant]
     Active Substance: HYDROMORPHONE
     Indication: Pain
  20. ADDERALL [Concomitant]
     Active Substance: AMPHETAMINE ASPARTATE\AMPHETAMINE SULFATE\DEXTROAMPHETAMINE SACCHARATE\DEXTROAMPHETAMINE SULFATE
     Indication: Somnolence

REACTIONS (6)
  - Postoperative abscess [Recovered/Resolved]
  - Post procedural sepsis [Recovered/Resolved]
  - Spondylolisthesis [Not Recovered/Not Resolved]
  - Sepsis [Recovered/Resolved]
  - Abscess [Recovered/Resolved]
  - Overdose [Not Recovered/Not Resolved]

NARRATIVE: CASE EVENT DATE: 20201201
